FAERS Safety Report 4966649-2 (Version None)
Quarter: 2006Q2

REPORT INFORMATION
  Report Type: 
  Country: None (occurrence: None)
  Receive Date: 20060407
  Receipt Date: 20060322
  Transmission Date: 20061013
  Serious: Yes (Hospitalization)
  Sender: FDA-Public Use
  Company Number: ES-ABBOTT-06P-144-0328823-00

PATIENT
  Age: 28 Year
  Sex: Female
  Weight: 45 kg

DRUGS (6)
  1. HUMIRA [Suspect]
     Indication: CROHN'S DISEASE
     Route: 058
     Dates: start: 20060101, end: 20060101
  2. HUMIRA [Suspect]
     Route: 058
     Dates: start: 20060201, end: 20060201
  3. HUMIRA [Suspect]
     Route: 058
     Dates: start: 20060201, end: 20060301
  4. CORTICOIDS [Concomitant]
     Indication: CROHN'S DISEASE
     Route: 048
     Dates: start: 20050601
  5. METHOTREXATE SODIUM [Concomitant]
     Indication: CROHN'S DISEASE
     Route: 048
     Dates: start: 20050601, end: 20060101
  6. AZATHIOPRINE [Concomitant]
     Indication: CROHN'S DISEASE
     Route: 048
     Dates: start: 20060101

REACTIONS (6)
  - ABDOMINAL PAIN LOWER [None]
  - CHEST DISCOMFORT [None]
  - CROHN'S DISEASE [None]
  - DIARRHOEA [None]
  - DISCOMFORT [None]
  - DYSPNOEA [None]
